FAERS Safety Report 17129276 (Version 1)
Quarter: 2019Q4

REPORT INFORMATION
  Report Type: Spontaneous
  Country: US (occurrence: US)
  Receive Date: 20191209
  Receipt Date: 20191209
  Transmission Date: 20200122
  Serious: Yes (Other)
  Sender: FDA-Public Use
  Company Number: US-APOTEX-2019AP025711

PATIENT
  Age: 11 Year
  Sex: Female

DRUGS (1)
  1. ARIPIPRAZOLE. [Suspect]
     Active Substance: ARIPIPRAZOLE
     Indication: AGITATION
     Dosage: 1 MG, QD (DAILY)
     Route: 065

REACTIONS (2)
  - Dystonia [Unknown]
  - Inappropriate antidiuretic hormone secretion [Unknown]
